FAERS Safety Report 20644319 (Version 1)
Quarter: 2022Q1

REPORT INFORMATION
  Report Type: Spontaneous
  Country: US (occurrence: None)
  Receive Date: 20220328
  Receipt Date: 20220328
  Transmission Date: 20220423
  Serious: No
  Sender: FDA-Public Use
  Company Number: None

PATIENT
  Age: 70 Year
  Sex: Female
  Weight: 68.04 kg

DRUGS (12)
  1. XIIDRA [Suspect]
     Active Substance: LIFITEGRAST
     Indication: Dry eye
  2. XIIDRA [Suspect]
     Active Substance: LIFITEGRAST
     Indication: Corneal abrasion
  3. olmesartin- hctz [Concomitant]
  4. desvenlafaxin [Concomitant]
  5. ezetimbe- simvastatin [Concomitant]
  6. LEVOTHYROXINE [Concomitant]
     Active Substance: LEVOTHYROXINE
  7. immutol norwegian beta [Concomitant]
  8. SAMBUCUS (MADE WITH VITAMIN C AND ZINC) [Concomitant]
  9. SELENEXGSH (SELENIUM FROM HIGH SELENIUM YEAST [Concomitant]
  10. N- ACETYL [Concomitant]
  11. BLOOD ORANGE EXTRACT CITRUS SINENSIS [Concomitant]
  12. VITAMIN D [Concomitant]
     Active Substance: VITAMIN D NOS

REACTIONS (5)
  - Eye irritation [None]
  - Asthenopia [None]
  - Eye pain [None]
  - Ocular hyperaemia [None]
  - Eye swelling [None]
